FAERS Safety Report 4749198-6 (Version None)
Quarter: 2005Q3

REPORT INFORMATION
  Report Type: 
  Country: None (occurrence: None)
  Receive Date: 20050817
  Receipt Date: 20050802
  Transmission Date: 20060218
  Serious: Yes (Death)
  Sender: FDA-Public Use
  Company Number: 2005-01644

PATIENT
  Age: 60 Year

DRUGS (1)
  1. VELCADE [Suspect]
     Indication: MULTIPLE MYELOMA
     Dosage: 1.67 MG, 2/WEEK, INTRAVENOUS
     Route: 042
     Dates: start: 20050725, end: 20050728

REACTIONS (6)
  - CHOLECYSTITIS [None]
  - DUODENITIS [None]
  - HYPOTENSION [None]
  - MULTI-ORGAN FAILURE [None]
  - SEPSIS [None]
  - TUMOUR LYSIS SYNDROME [None]
